FAERS Safety Report 9285608 (Version 1)
Quarter: 2013Q2

REPORT INFORMATION
  Report Type: Spontaneous
  Country: US (occurrence: None)
  Receive Date: 20130510
  Receipt Date: 20130510
  Transmission Date: 20140414
  Serious: No
  Sender: FDA-Public Use
  Company Number: None

PATIENT
  Sex: Male

DRUGS (2)
  1. CLOBETASOL PROPIONATE [Suspect]
     Indication: PSORIASIS
     Route: 061
     Dates: start: 2008
  2. CLOBETASOL PROPIONATE [Suspect]

REACTIONS (3)
  - Product substitution issue [None]
  - Drug ineffective [None]
  - Drug intolerance [None]
